FAERS Safety Report 24946308 (Version 1)
Quarter: 2025Q1

REPORT INFORMATION
  Report Type: Spontaneous
  Country: US (occurrence: US)
  Receive Date: 20250210
  Receipt Date: 20250210
  Transmission Date: 20250408
  Serious: Yes (Other)
  Sender: ALKEM
  Company Number: None

PATIENT
  Age: 55 Year
  Sex: Male

DRUGS (25)
  1. LINEZOLID [Suspect]
     Active Substance: LINEZOLID
     Indication: Osteomyelitis bacterial
     Route: 065
  2. LINEZOLID [Suspect]
     Active Substance: LINEZOLID
     Indication: Vascular device infection
     Route: 042
  3. LINEZOLID [Suspect]
     Active Substance: LINEZOLID
     Indication: Postoperative wound infection
  4. LINEZOLID [Suspect]
     Active Substance: LINEZOLID
     Indication: Skin infection
  5. LINEZOLID [Suspect]
     Active Substance: LINEZOLID
     Indication: Soft tissue infection
  6. LINEZOLID [Suspect]
     Active Substance: LINEZOLID
     Indication: Chest pain
  7. LINEZOLID [Suspect]
     Active Substance: LINEZOLID
     Indication: Erythema
  8. AZITHROMYCIN [Concomitant]
     Active Substance: AZITHROMYCIN
     Indication: Soft tissue infection
     Route: 048
  9. AZITHROMYCIN [Concomitant]
     Active Substance: AZITHROMYCIN
     Indication: Vascular device infection
     Route: 042
  10. AZITHROMYCIN [Concomitant]
     Active Substance: AZITHROMYCIN
     Indication: Osteomyelitis bacterial
  11. AZITHROMYCIN [Concomitant]
     Active Substance: AZITHROMYCIN
     Indication: Skin infection
  12. AZITHROMYCIN [Concomitant]
     Active Substance: AZITHROMYCIN
     Indication: Postoperative wound infection
  13. AZITHROMYCIN [Concomitant]
     Active Substance: AZITHROMYCIN
     Indication: Mycobacterium abscessus infection
  14. BEDAQUILINE [Concomitant]
     Active Substance: BEDAQUILINE
     Indication: Skin infection
     Route: 048
  15. BEDAQUILINE [Concomitant]
     Active Substance: BEDAQUILINE
     Indication: Postoperative wound infection
  16. BEDAQUILINE [Concomitant]
     Active Substance: BEDAQUILINE
     Indication: Vascular device infection
  17. BEDAQUILINE [Concomitant]
     Active Substance: BEDAQUILINE
     Indication: Soft tissue infection
  18. BEDAQUILINE [Concomitant]
     Active Substance: BEDAQUILINE
     Indication: Osteomyelitis bacterial
  19. CADEXOMER IODINE [Concomitant]
     Active Substance: CADEXOMER IODINE
     Indication: Debridement
     Route: 065
  20. ONDANSETRON [Concomitant]
     Active Substance: ONDANSETRON
     Indication: Nausea
     Route: 065
  21. TIGECYCLINE [Concomitant]
     Active Substance: TIGECYCLINE
     Indication: Postoperative wound infection
     Route: 042
  22. TIGECYCLINE [Concomitant]
     Active Substance: TIGECYCLINE
     Indication: Skin infection
  23. TIGECYCLINE [Concomitant]
     Active Substance: TIGECYCLINE
     Indication: Soft tissue infection
  24. TIGECYCLINE [Concomitant]
     Active Substance: TIGECYCLINE
     Indication: Osteomyelitis bacterial
  25. TIGECYCLINE [Concomitant]
     Active Substance: TIGECYCLINE
     Indication: Mycobacterium abscessus infection

REACTIONS (1)
  - Cytopenia [Recovered/Resolved]
